FAERS Safety Report 7803425-7 (Version None)
Quarter: 2011Q4

REPORT INFORMATION
  Report Type: 
  Country: None (occurrence: None)
  Receive Date: 20111007
  Receipt Date: 20101123
  Transmission Date: 20120403
  Serious: No
  Sender: FDA-Public Use
  Company Number: US-BAYER-2010-005167

PATIENT
  Sex: Female

DRUGS (2)
  1. CIPRO [Suspect]
     Indication: CYSTITIS
     Dosage: 500 MG, BID
     Dates: start: 20101102, end: 20101104
  2. LUMIGAN [Concomitant]

REACTIONS (8)
  - PRURITUS [None]
  - MUSCULOSKELETAL STIFFNESS [None]
  - BURNING SENSATION [None]
  - PAIN [None]
  - HEADACHE [None]
  - FATIGUE [None]
  - ARTHRALGIA [None]
  - GAIT DISTURBANCE [None]
